FAERS Safety Report 8003903-4 (Version None)
Quarter: 2011Q4

REPORT INFORMATION
  Report Type: 
  Country: None (occurrence: None)
  Receive Date: 20111222
  Receipt Date: 20111213
  Transmission Date: 20120403
  Serious: Yes (Other)
  Sender: FDA-Public Use
  Company Number: US-ASTRAZENECA-2011SE75321

PATIENT
  Age: 78 Year
  Sex: Female

DRUGS (6)
  1. CRESTOR [Suspect]
     Indication: LOW DENSITY LIPOPROTEIN DECREASED
     Route: 048
     Dates: start: 20050101
  2. ZOCOR [Concomitant]
     Indication: LOW DENSITY LIPOPROTEIN DECREASED
  3. ZETIA [Concomitant]
     Indication: LOW DENSITY LIPOPROTEIN DECREASED
     Route: 048
     Dates: start: 20050101
  4. BAYCOL [Concomitant]
     Indication: LOW DENSITY LIPOPROTEIN DECREASED
  5. PRAVACHOL [Concomitant]
     Indication: LOW DENSITY LIPOPROTEIN DECREASED
  6. LIPITOR [Concomitant]
     Indication: LOW DENSITY LIPOPROTEIN DECREASED

REACTIONS (10)
  - BLOOD TRIGLYCERIDES INCREASED [None]
  - DRUG DOSE OMISSION [None]
  - BLOOD CHOLESTEROL INCREASED [None]
  - VASCULAR BYPASS DYSFUNCTION [None]
  - ADVERSE EVENT [None]
  - LOW DENSITY LIPOPROTEIN INCREASED [None]
  - BLOOD PRESSURE INCREASED [None]
  - HIGH DENSITY LIPOPROTEIN DECREASED [None]
  - ARTHRALGIA [None]
  - PAIN IN EXTREMITY [None]
